FAERS Safety Report 6378527-5 (Version None)
Quarter: 2009Q3

REPORT INFORMATION
  Report Type: 
  Country: None (occurrence: None)
  Receive Date: 20090928
  Receipt Date: 20090917
  Transmission Date: 20100115
  Serious: Yes (Hospitalization)
  Sender: FDA-Public Use
  Company Number: US-BIOGENIDEC-2009BI030430

PATIENT
  Age: 61 Year
  Sex: Female

DRUGS (3)
  1. AVONEX [Suspect]
     Indication: MULTIPLE SCLEROSIS
     Route: 030
     Dates: start: 19961101, end: 20061128
  2. AVONEX [Suspect]
     Route: 030
     Dates: start: 20080701, end: 20090310
  3. AVONEX [Suspect]
     Route: 030

REACTIONS (4)
  - FALL [None]
  - SHOULDER ARTHROPLASTY [None]
  - TOOTH FRACTURE [None]
  - UPPER LIMB FRACTURE [None]
